FAERS Safety Report 10624443 (Version 1)
Quarter: 2014Q4

REPORT INFORMATION
  Report Type: Spontaneous
  Country: US (occurrence: US)
  Receive Date: 20141203
  Receipt Date: 20141203
  Transmission Date: 20150529
  Serious: No
  Sender: FDA-Public Use
  Company Number: US-SA-2014SA121415

PATIENT
  Age: 65 Year
  Sex: Female
  Weight: 127 kg

DRUGS (3)
  1. RENVELA [Suspect]
     Active Substance: SEVELAMER CARBONATE
     Indication: CHRONIC KIDNEY DISEASE
     Route: 048
     Dates: start: 20140618, end: 201408
  2. RENVELA [Suspect]
     Active Substance: SEVELAMER CARBONATE
     Indication: HYPERPHOSPHATAEMIA
     Route: 048
     Dates: start: 20140618, end: 201408
  3. SEVELAMER CARBONATE. [Suspect]
     Active Substance: SEVELAMER CARBONATE
     Indication: CHRONIC KIDNEY DISEASE
     Dosage: SHE STARTED ON ^GENERIC RENVELA^ IN LATE JULY 2014 TO EARLY AUG 2014
     Route: 048
     Dates: start: 2014

REACTIONS (4)
  - Overdose [Unknown]
  - Pruritus [Recovered/Resolved]
  - Burning sensation [Unknown]
  - Erythema [Recovered/Resolved]

NARRATIVE: CASE EVENT DATE: 2014
